FAERS Safety Report 7690898-6 (Version None)
Quarter: 2011Q3

REPORT INFORMATION
  Report Type: 
  Country: None (occurrence: None)
  Receive Date: 20110818
  Receipt Date: 20110818
  Transmission Date: 20111222
  Serious: Yes (Other)
  Sender: FDA-Public Use
  Company Number: None

PATIENT
  Age: 25 Year
  Sex: Male
  Weight: 88.45 kg

DRUGS (1)
  1. MINOXIDIL EXTRA STRENGTH (FOR MEN) [Suspect]
     Indication: ANDROGENETIC ALOPECIA
     Route: 061
     Dates: start: 20110813, end: 20110815

REACTIONS (1)
  - DIZZINESS [None]
